FAERS Safety Report 6118960-X (Version None)
Quarter: 2009Q1

REPORT INFORMATION
  Report Type: 
  Country: None (occurrence: None)
  Receive Date: 20090316
  Receipt Date: 20090220
  Transmission Date: 20090719
  Serious: Yes (Other)
  Sender: FDA-Public Use
  Company Number: US-BAYER-200913931GPV

PATIENT

DRUGS (1)
  1. REFLUDAN [Suspect]
     Indication: HEPARIN-INDUCED THROMBOCYTOPENIA
     Route: 065

REACTIONS (3)
  - ABDOMINAL PAIN [None]
  - CHOLANGITIS SCLEROSING [None]
  - HEPATIC HAEMATOMA [None]
